FAERS Safety Report 20761506 (Version 3)
Quarter: 2022Q2

REPORT INFORMATION
  Report Type: Report from Study
  Country: IT (occurrence: IT)
  Receive Date: 20220428
  Receipt Date: 20220511
  Transmission Date: 20220721
  Serious: Yes (Hospitalization, Other)
  Sender: FDA-Public Use
  Company Number: IT-ABBVIE-22K-083-4373014-00

PATIENT
  Age: 57 Year
  Sex: Male

DRUGS (3)
  1. CARBIDOPA\LEVODOPA [Suspect]
     Active Substance: CARBIDOPA\LEVODOPA
     Indication: Parkinson^s disease
     Dosage: TOTAL DAILY DOSE (MG): 1276; PUMP SETTING: MD: 7+3; CR: 3,7 (14H); ED: 2,5
     Route: 050
     Dates: start: 20190304, end: 20220426
  2. CARBIDOPA\LEVODOPA [Suspect]
     Active Substance: CARBIDOPA\LEVODOPA
     Dosage: TOTAL DAILY DOSE (MG): 1276; PUMP SETTING: MD: 7+3; CR: 3,7 (14H); ED: 2,5
     Route: 050
     Dates: start: 20220426, end: 20220428
  3. CARBIDOPA\LEVODOPA [Suspect]
     Active Substance: CARBIDOPA\LEVODOPA
     Dosage: TOTAL DAILY DOSE (MG): 1276; PUMP SETTING: MD: 7+3: CR: 3.7 (14H); ED: 2.5
     Route: 050
     Dates: start: 2022

REACTIONS (3)
  - Volvulus [Recovered/Resolved]
  - Dehiscence [Recovered/Resolved]
  - Off label use [Recovered/Resolved]

NARRATIVE: CASE EVENT DATE: 20220401
